FAERS Safety Report 23739823 (Version 4)
Quarter: 2025Q3

REPORT INFORMATION
  Report Type: Report from Study
  Country: EU (occurrence: EU)
  Receive Date: 20240414
  Receipt Date: 20250912
  Transmission Date: 20251020
  Serious: No
  Sender: SANDOZ
  Company Number: EU-SANDOZ-SDZ2024IT038634

PATIENT
  Age: 11 Year
  Sex: Male
  Weight: 32 kg

DRUGS (3)
  1. OMNITROPE [Suspect]
     Active Substance: SOMATROPIN
     Indication: Growth hormone deficiency
     Route: 058
     Dates: start: 20230714
  2. OMNITROPE [Suspect]
     Active Substance: SOMATROPIN
     Dosage: 1 MG, QD, (ONCE DAILY)
     Route: 058
     Dates: start: 20230714
  3. OMNITROPE [Suspect]
     Active Substance: SOMATROPIN
     Dosage: 1.1 MG, QD
     Route: 058
     Dates: start: 20250214

REACTIONS (5)
  - Incorrect dose administered [Unknown]
  - Drug dose omission by device [Unknown]
  - Product use complaint [Unknown]
  - Device issue [Unknown]
  - Device mechanical issue [Unknown]

NARRATIVE: CASE EVENT DATE: 20240408
